FAERS Safety Report 24304106 (Version 3)
Quarter: 2024Q4

REPORT INFORMATION
  Report Type: Spontaneous
  Country: CO (occurrence: CO)
  Receive Date: 20240910
  Receipt Date: 20241031
  Transmission Date: 20250114
  Serious: Yes (Hospitalization, Other)
  Sender: LUNDBECK
  Company Number: CO-SA-2024SA254327

PATIENT

DRUGS (4)
  1. CLOBAZAM [Suspect]
     Active Substance: CLOBAZAM
     Indication: Epilepsy
     Dosage: 20 MG, Q8H
     Route: 048
     Dates: start: 2009, end: 20240510
  2. CLOBAZAM [Suspect]
     Active Substance: CLOBAZAM
     Dosage: 15 MG, QD (GRADUALLY DECREASE THE MEDICATION BY 5 MG IN SOME OF THE DAILY DOSES)
     Route: 048
     Dates: start: 202408
  3. TOPIRAMATE [Concomitant]
     Active Substance: TOPIRAMATE
     Indication: Epilepsy
     Dosage: 100 MG, BID
     Route: 048
  4. TRILEPTAL [Concomitant]
     Active Substance: OXCARBAZEPINE
     Indication: Epilepsy
     Dosage: 600 MG, Q8H
     Route: 048

REACTIONS (12)
  - Epilepsy [Not Recovered/Not Resolved]
  - Seizure [Recovering/Resolving]
  - Status epilepticus [Not Recovered/Not Resolved]
  - Petit mal epilepsy [Unknown]
  - Abnormal behaviour [Recovering/Resolving]
  - Photophobia [Not Recovered/Not Resolved]
  - Feeling of despair [Unknown]
  - Insomnia [Recovering/Resolving]
  - Headache [Not Recovered/Not Resolved]
  - Product administered to patient of inappropriate age [Unknown]
  - Anxiety [Unknown]
  - Incorrect dose administered [Unknown]

NARRATIVE: CASE EVENT DATE: 20090101
